FAERS Safety Report 12973581 (Version 1)
Quarter: 2016Q4

REPORT INFORMATION
  Report Type: Report from Study
  Country: TW (occurrence: TW)
  Receive Date: 20161124
  Receipt Date: 20161124
  Transmission Date: 20170207
  Serious: Yes (Other)
  Sender: FDA-Public Use
  Company Number: TW-JNJFOC-20161121005

PATIENT
  Age: 48 Year
  Sex: Female

DRUGS (1)
  1. STELARA [Suspect]
     Active Substance: USTEKINUMAB
     Indication: PSORIASIS
     Route: 058

REACTIONS (2)
  - Hepatic steatosis [Unknown]
  - Hepatic neoplasm [Unknown]
